FAERS Safety Report 25216694 (Version 3)
Quarter: 2025Q2

REPORT INFORMATION
  Report Type: Report from Study
  Country: US (occurrence: US)
  Receive Date: 20250419
  Receipt Date: 20250613
  Transmission Date: 20250717
  Serious: Yes (Other)
  Sender: ROCHE
  Company Number: US-ROCHE-3499981

PATIENT
  Sex: Female

DRUGS (18)
  1. CELLCEPT [Suspect]
     Active Substance: MYCOPHENOLATE MOFETIL
     Indication: Psoriatic arthropathy
     Dosage: THREE TABS BID
     Route: 048
  2. CELLCEPT [Suspect]
     Active Substance: MYCOPHENOLATE MOFETIL
     Indication: Psoriasis
     Route: 048
  3. CELLCEPT [Suspect]
     Active Substance: MYCOPHENOLATE MOFETIL
     Dosage: 500 MG 2 TABLETS BID
     Route: 048
  4. VALIUM [Suspect]
     Active Substance: DIAZEPAM
     Indication: Product used for unknown indication
     Route: 050
  5. ASPIRIN [Concomitant]
     Active Substance: ASPIRIN
     Route: 048
  6. FERROUS SULFATE [Concomitant]
     Active Substance: FERROUS SULFATE
     Route: 048
  7. TYLENOL EXTRA STRENGTH [Concomitant]
     Active Substance: ACETAMINOPHEN
     Route: 048
  8. VITAMIN D3 [Concomitant]
     Active Substance: CHOLECALCIFEROL
     Route: 048
  9. CARVEDILOL [Concomitant]
     Active Substance: CARVEDILOL
     Route: 048
  10. VENTOLIN HFA [Concomitant]
     Active Substance: ALBUTEROL SULFATE
     Route: 055
  11. ROSUVASTATIN CALCIUM [Concomitant]
     Active Substance: ROSUVASTATIN CALCIUM
     Route: 048
  12. FENOFIBRATE [Concomitant]
     Active Substance: FENOFIBRATE
     Route: 048
  13. HYDROCORTISONE [Concomitant]
     Active Substance: HYDROCORTISONE
  14. CLONIDINE HYDROCHLORIDE [Concomitant]
     Active Substance: CLONIDINE HYDROCHLORIDE
     Route: 048
  15. OLMESARTAN MEDOXOMIL [Concomitant]
     Active Substance: OLMESARTAN MEDOXOMIL
     Route: 048
  16. CLONIDINE [Concomitant]
     Active Substance: CLONIDINE
  17. LEVOTHYROXINE SODIUM [Concomitant]
     Active Substance: LEVOTHYROXINE SODIUM
     Route: 048
  18. OXYBUTYNIN CHLORIDE [Concomitant]
     Active Substance: OXYBUTYNIN CHLORIDE
     Route: 048

REACTIONS (37)
  - Off label use [Unknown]
  - Illness [Unknown]
  - Blindness [Unknown]
  - Hypertension [Unknown]
  - Drug hypersensitivity [Unknown]
  - Stress urinary incontinence [Unknown]
  - Hypothyroidism [Unknown]
  - Dyslipidaemia [Unknown]
  - Chronic obstructive pulmonary disease [Unknown]
  - Cardiac failure [Unknown]
  - Dyspnoea [Unknown]
  - Pulmonary hypertension [Unknown]
  - Coronary artery disease [Unknown]
  - Peripheral venous disease [Unknown]
  - Cellulitis [Unknown]
  - Varicose vein [Unknown]
  - Blister [Unknown]
  - Urinary tract infection [Unknown]
  - Anxiety [Unknown]
  - Depression [Unknown]
  - Aortic arteriosclerosis [Unknown]
  - Arthralgia [Unknown]
  - Carotid arteriosclerosis [Unknown]
  - Arteriosclerosis [Unknown]
  - Chronic left ventricular failure [Unknown]
  - Herpes simplex [Unknown]
  - Immunodeficiency [Unknown]
  - Mobility decreased [Unknown]
  - Osteopenia [Unknown]
  - Proteinuria [Unknown]
  - Oedema peripheral [Unknown]
  - Pernicious anaemia [Unknown]
  - Hypertriglyceridaemia [Unknown]
  - Renal artery arteriosclerosis [Unknown]
  - Hyperaldosteronism [Unknown]
  - Chronic kidney disease [Unknown]
  - Psoriasis [Unknown]
